FAERS Safety Report 22023114 (Version 4)
Quarter: 2023Q1

REPORT INFORMATION
  Report Type: Spontaneous
  Country: PT (occurrence: PT)
  Receive Date: 20230223
  Receipt Date: 20230322
  Transmission Date: 20230417
  Serious: Yes (Hospitalization)
  Sender: FDA-Public Use
  Company Number: PT-GLAXOSMITHKLINE-PT2023GSK024091

PATIENT
  Age: 15 Year
  Sex: Female

DRUGS (1)
  1. AMOXICILLIN TRIHYDRATE [Suspect]
     Active Substance: AMOXICILLIN
     Indication: Oropharyngeal pain
     Dosage: UNK
     Route: 065

REACTIONS (8)
  - Face oedema [Recovered/Resolved]
  - Rash [Unknown]
  - Rash maculo-papular [Recovered/Resolved]
  - Eosinophilia [Recovered/Resolved]
  - Periorbital oedema [Recovered/Resolved]
  - Lymphocyte count increased [Recovered/Resolved]
  - Pruritus [Recovered/Resolved]
  - Pharyngeal erythema [Recovered/Resolved]
